FAERS Safety Report 8068342-9 (Version None)
Quarter: 2012Q1

REPORT INFORMATION
  Report Type: 
  Country: None (occurrence: None)
  Receive Date: 20120124
  Receipt Date: 20111012
  Transmission Date: 20120608
  Serious: No
  Sender: FDA-Public Use
  Company Number: US-AMGEN-USASP2011052716

PATIENT
  Sex: Female

DRUGS (9)
  1. PROLIA [Suspect]
     Indication: OSTEOPOROSIS POSTMENOPAUSAL
     Dosage: 60 MG, Q6MO
     Dates: start: 20110330
  2. VITAMIN B1 TAB [Concomitant]
  3. SIMVASTATIN [Concomitant]
  4. MAGNESIUM OXIDE [Concomitant]
  5. PRILOSEC [Concomitant]
  6. HYDROCHLOROTHIAZIDE [Concomitant]
  7. CALCIUM CARBONATE [Concomitant]
  8. LORAZEPAM [Concomitant]
  9. MULTI-VITAMIN [Concomitant]

REACTIONS (1)
  - RASH PRURITIC [None]
